FAERS Safety Report 12723286 (Version 1)
Quarter: 2016Q3

REPORT INFORMATION
  Report Type: Spontaneous
  Country: FR (occurrence: FR)
  Receive Date: 20160908
  Receipt Date: 20160908
  Transmission Date: 20161109
  Serious: Yes (Hospitalization)
  Sender: FDA-Public Use
  Company Number: FR-ACCORD-043769

PATIENT
  Age: 12 Year
  Sex: Female

DRUGS (20)
  1. CHIROCAINE [Suspect]
     Active Substance: LEVOBUPIVACAINE HYDROCHLORIDE
     Indication: ANAESTHESIA
     Dosage: 7.5 MG +10 MG+15 MG+0.05 MG
     Route: 008
     Dates: start: 20160616, end: 20160617
  2. KETAMINE RENAUDIN [Suspect]
     Active Substance: KETAMINE
     Indication: ANAESTHESIA
     Dosage: STRENGTH: 50 MG/ML, IN ONE SINGLE INTAKE?SOLUTION INJECTABLE
     Route: 008
     Dates: start: 20160616, end: 20160616
  3. EUPANTOL [Concomitant]
     Active Substance: PANTOPRAZOLE SODIUM
  4. FUNGIZONE [Concomitant]
     Active Substance: AMPHOTERICIN B
     Dosage: LIPOSOME
  5. NALBUPHINE MYLAN [Suspect]
     Active Substance: NALBUPHINE
     Indication: GAIT DISTURBANCE
     Dosage: STRENGTH: 20 MG/2 ML, ONE SINGLE INTAKE?SOLUTION INJECTABLE
     Route: 042
     Dates: start: 20160616, end: 20160616
  6. CALCIDOSE VITAMINE D [Concomitant]
     Active Substance: CALCIUM\CHOLECALCIFEROL
     Dosage: IN SACHET DOSE
  7. MORPHINE [Concomitant]
     Active Substance: MORPHINE
  8. PROFENID [Suspect]
     Active Substance: KETOPROFEN
     Indication: GAIT DISTURBANCE
     Dosage: STRENGTH: 100 MG, ONE SINGLE INTAKE IN VIAL
     Route: 042
     Dates: start: 20160618, end: 20160618
  9. FRAGMINE [Suspect]
     Active Substance: DALTEPARIN SODIUM
     Indication: ANTICOAGULANT THERAPY
     Dosage: STRENGTH: 2 500 U.I. ANTI XA/0,2 ML, 1 DOSAGE FORM SOLUTION FOR INJECTION IN PRE-FILLED SYRINGE
     Route: 058
     Dates: start: 20160618
  10. ONDANSETRON ACCORD [Suspect]
     Active Substance: ONDANSETRON
     Indication: ANTIEMETIC SUPPORTIVE CARE
     Dosage: 0.3 MG/KG, ONCE IN EVERY 8 HOURS
     Route: 042
     Dates: start: 20160616, end: 20160620
  11. DIFFU K [Concomitant]
     Active Substance: POTASSIUM CHLORIDE
  12. UVEDOSE [Concomitant]
     Active Substance: CHOLECALCIFEROL
     Dosage: STRENGTH: 100 000 UI, ORAL SOLUTION IN AMPOULE
  13. OMEPRAZOLE. [Concomitant]
     Active Substance: OMEPRAZOLE
  14. PHOSPHONEUROS [Concomitant]
     Active Substance: CALCIUM PHOSPHATE, DIBASIC, ANHYDROUS\MAGNESIUM GLYCEROPHOSPHATE\PHOSPHORIC ACID\SODIUM PHOSPHATE, DIBASIC
  15. CEFAZOLIN MYLAN [Suspect]
     Active Substance: CEFAZOLIN
     Indication: ANTIBIOTIC PROPHYLAXIS
     Dosage: STRENGTH: 1 G?37.5 MG/KG, ONCE EVERY 8 HOURS (IM-IV)
     Route: 042
     Dates: start: 20160616, end: 20160717
  16. DROPERIDOL AGUETTANT [Suspect]
     Active Substance: DROPERIDOL
     Indication: PROPHYLAXIS OF NAUSEA AND VOMITING
     Dosage: STRENGTH: 1.25 MG/ML ?4 MG, ONCE EVERY 6 HOURS?SOLUTION INJECTABLE
     Route: 042
     Dates: start: 20160617, end: 20160620
  17. PROPOFOL LIPURO [Suspect]
     Active Substance: PROPOFOL
     Indication: ANAESTHESIA
     Dosage: STRENGTH: 20 MG/ML,?100 MG AND THAN 50 MG, ONE SINGLE INTAKE
     Route: 008
     Dates: start: 20160616, end: 20160616
  18. SUFENTANIL MYLAN [Suspect]
     Active Substance: SUFENTANIL
     Indication: ANAESTHESIA
     Dosage: ONE SINGLE INTAKE, 10 + 5+ 5 MCG
     Route: 008
     Dates: start: 20160616, end: 20160616
  19. PARACETAMOL MACOPHARMA [Suspect]
     Active Substance: ACETAMINOPHEN
     Indication: ANALGESIC THERAPY
     Dosage: STRENGTH: 60 MG/KG, ONCE IN EVERY 6 HOURS
     Route: 042
     Dates: start: 20160616, end: 20160620
  20. ELUDRIL [Concomitant]
     Active Substance: CHLORHEXIDINE GLUCONATE\CHLOROBUTANOL

REACTIONS (1)
  - Pancreatitis acute [Recovered/Resolved]

NARRATIVE: CASE EVENT DATE: 20160619
